FAERS Safety Report 13488608 (Version 2)
Quarter: 2017Q2

REPORT INFORMATION
  Report Type: Spontaneous
  Country: ES (occurrence: ES)
  Receive Date: 20170427
  Receipt Date: 20170511
  Transmission Date: 20170830
  Serious: Yes (Hospitalization, Other)
  Sender: FDA-Public Use
  Company Number: ES-AUROBINDO-AUR-APL-2017-33067

PATIENT
  Age: 77 Year
  Sex: Male

DRUGS (9)
  1. DAPTOMYCIN. [Suspect]
     Active Substance: DAPTOMYCIN
     Indication: INFECTION PROPHYLAXIS
     Dosage: 500 MG, DAILY
     Route: 065
     Dates: start: 201511
  2. AMPICILLIN [Suspect]
     Active Substance: AMPICILLIN
     Indication: ENTEROCOCCAL INFECTION
     Dosage: 2 G, EVERY FOUR HOUR
     Route: 065
     Dates: start: 201511
  3. CIPROFLOXACIN 750MG [Suspect]
     Active Substance: CIPROFLOXACIN
     Indication: INFECTION
     Dosage: 750 MG, TWO TIMES A DAY
     Route: 065
  4. VANCOMYCIN [Suspect]
     Active Substance: VANCOMYCIN
     Indication: INFECTION PROPHYLAXIS
     Dosage: UNK
     Route: 065
     Dates: start: 201511
  5. GENTAMICIN. [Suspect]
     Active Substance: GENTAMICIN
     Indication: ENTEROCOCCAL INFECTION
     Dosage: 1 MG/KG, 3 TIMES A DAY
     Route: 065
     Dates: start: 201511
  6. PIPERACILLIN AND TAZOBACTAM [Suspect]
     Active Substance: PIPERACILLIN SODIUM\TAZOBACTAM SODIUM
     Indication: INFECTION PROPHYLAXIS
     Dosage: 4 G,EVERY 6 HOURS
     Route: 065
     Dates: start: 201512
  7. METHOTREXATE. [Suspect]
     Active Substance: METHOTREXATE
     Indication: RHEUMATOID ARTHRITIS
     Dosage: UNK
     Route: 065
  8. LINEZOLID 600 MG [Suspect]
     Active Substance: LINEZOLID
     Indication: INFECTION PROPHYLAXIS
     Dosage: 600 MG, TWO TIMES A DAY
     Route: 065
  9. MEROPENEM. [Suspect]
     Active Substance: MEROPENEM
     Indication: INFECTION
     Dosage: TIMES1 G, 3 TIMES A DAY
     Route: 065
     Dates: start: 201511

REACTIONS (4)
  - Arthritis infective [Recovered/Resolved]
  - Rash [Unknown]
  - C-reactive protein increased [Unknown]
  - Candida infection [Recovered/Resolved]
